FAERS Safety Report 6831580-4 (Version None)
Quarter: 2010Q3

REPORT INFORMATION
  Report Type: 
  Country: None (occurrence: None)
  Receive Date: 20100712
  Receipt Date: 20100629
  Transmission Date: 20110219
  Serious: Yes (Other)
  Sender: FDA-Public Use
  Company Number: PHHY2010BR42607

PATIENT
  Sex: Female

DRUGS (1)
  1. DIOVAN TRIPLE [Suspect]
     Dosage: 160/5/12.5 MG

REACTIONS (4)
  - ABDOMINAL PAIN UPPER [None]
  - ARTHRALGIA [None]
  - GASTROINTESTINAL SURGERY [None]
  - SENSATION OF HEAVINESS [None]
